FAERS Safety Report 8312963-2 (Version None)
Quarter: 2012Q2

REPORT INFORMATION
  Report Type: 
  Country: None (occurrence: None)
  Receive Date: 20120424
  Receipt Date: 20120409
  Transmission Date: 20120825
  Serious: Yes (Other)
  Sender: FDA-Public Use
  Company Number: 2012-00619

PATIENT
  Age: 30 Year
  Sex: Male

DRUGS (1)
  1. SERTRALINE HYDROCHLORIDE [Suspect]
     Indication: DEPRESSION
     Dosage: 100 MG (100 MG,  1 IN 1 D),ORAL
     Route: 048

REACTIONS (5)
  - MOUTH ULCERATION [None]
  - LOOSE TOOTH [None]
  - TYPE IV HYPERSENSITIVITY REACTION [None]
  - ACUTE FEBRILE NEUTROPHILIC DERMATOSIS [None]
  - RASH GENERALISED [None]
